FAERS Safety Report 7663335-5 (Version None)
Quarter: 2011Q3

REPORT INFORMATION
  Report Type: 
  Country: None (occurrence: None)
  Receive Date: 20110805
  Receipt Date: 20100901
  Transmission Date: 20111222
  Serious: No
  Sender: FDA-Public Use
  Company Number: US-ABBOTT-10P-163-0667696-00

PATIENT
  Sex: Male
  Weight: 93.07 kg

DRUGS (2)
  1. UNKNOWN BP MEDICATION [Concomitant]
     Indication: BLOOD PRESSURE
  2. NIASPAN [Suspect]
     Indication: BLOOD TRIGLYCERIDES INCREASED
     Dosage: AT BEDTIME
     Dates: start: 20100729

REACTIONS (4)
  - HEADACHE [None]
  - PRURITUS [None]
  - SLEEP DISORDER [None]
  - PAIN [None]
